FAERS Safety Report 7086746-8 (Version None)
Quarter: 2010Q4

REPORT INFORMATION
  Report Type: 
  Country: None (occurrence: None)
  Receive Date: 20101105
  Receipt Date: 20101026
  Transmission Date: 20110411
  Serious: Yes (Other)
  Sender: FDA-Public Use
  Company Number: US-ELI_LILLY_AND_COMPANY-US201010007197

PATIENT
  Sex: Female

DRUGS (3)
  1. HUMULIN 70/30 [Suspect]
     Indication: DIABETES MELLITUS
     Dosage: 25 U, EACH MORNING
  2. HUMULIN 70/30 [Suspect]
     Dosage: 15 U, EACH EVENING
  3. HUMALOG [Suspect]
     Indication: DIABETES MELLITUS
     Dosage: UNK, OTHER

REACTIONS (5)
  - BLINDNESS [None]
  - BLOOD GLUCOSE INCREASED [None]
  - DIABETIC RETINOPATHY [None]
  - DRUG DOSE OMISSION [None]
  - INADEQUATE DIET [None]
